FAERS Safety Report 8967894 (Version 1)
Quarter: 2012Q4

REPORT INFORMATION
  Report Type: 
  Country: GB (occurrence: GB)
  Receive Date: 20121218
  Receipt Date: 20121218
  Transmission Date: 20130627
  Serious: Yes (Hospitalization)
  Sender: FDA-Public Use
  Company Number: PHFR2012GB004035

PATIENT
  Age: 26 Year
  Sex: Male
  Weight: 105 kg

DRUGS (4)
  1. CLOZARIL [Suspect]
     Indication: SCHIZOPHRENIA
     Dosage: UNK UKN, UNK
     Route: 048
     Dates: start: 20110218
  2. CLOZARIL [Suspect]
     Dosage: 350 mg, daily
     Route: 048
  3. LANSOPRAZOLE [Concomitant]
     Dosage: UNK UKN, UNK
     Route: 048
  4. DIAZEPAM [Concomitant]
     Dosage: 5 mg, daily
     Route: 048

REACTIONS (4)
  - Haematemesis [Recovering/Resolving]
  - Peptic ulcer [Unknown]
  - Weight decreased [Unknown]
  - Epigastric discomfort [Unknown]
